FAERS Safety Report 22049169 (Version 1)
Quarter: 2023Q1

REPORT INFORMATION
  Report Type: Spontaneous
  Country: CN (occurrence: CN)
  Receive Date: 20230301
  Receipt Date: 20230301
  Transmission Date: 20230417
  Serious: Yes (Life-Threatening, Other)
  Sender: FDA-Public Use
  Company Number: CN-SA-SAC20230227001432

PATIENT
  Age: 63 Year
  Sex: Male
  Weight: 45 kg

DRUGS (3)
  1. ENOXAPARIN SODIUM [Suspect]
     Active Substance: ENOXAPARIN SODIUM
     Indication: Anticoagulant therapy
     Dosage: 0.4 ML, QD
     Route: 058
     Dates: start: 20230127, end: 20230209
  2. TICAGRELOR [Suspect]
     Active Substance: TICAGRELOR
     Indication: Antiplatelet therapy
     Dosage: 60 MG, Q12H
     Route: 048
     Dates: start: 20230127, end: 20230209
  3. ESOMEPRAZOLE SODIUM [Concomitant]
     Active Substance: ESOMEPRAZOLE SODIUM
     Dosage: 40 MG, BID
     Route: 041
     Dates: start: 20230127, end: 20230209

REACTIONS (14)
  - Acute myocardial infarction [Recovering/Resolving]
  - Upper gastrointestinal haemorrhage [Recovering/Resolving]
  - Shock [Recovering/Resolving]
  - Haemoptysis [Recovering/Resolving]
  - Platelet count decreased [Recovering/Resolving]
  - Heart rate increased [Recovering/Resolving]
  - Blood pressure decreased [Recovering/Resolving]
  - Respiratory rate increased [Recovering/Resolving]
  - Cardiovascular disorder [Recovering/Resolving]
  - Infection [Recovering/Resolving]
  - Gastric occult blood positive [Recovering/Resolving]
  - Occult blood negative [Recovering/Resolving]
  - Condition aggravated [Recovering/Resolving]
  - Haemoglobin decreased [Recovering/Resolving]

NARRATIVE: CASE EVENT DATE: 20230209
